FAERS Safety Report 21438261 (Version 1)
Quarter: 2022Q4

REPORT INFORMATION
  Report Type: Spontaneous
  Country: US (occurrence: US)
  Receive Date: 20221011
  Receipt Date: 20221011
  Transmission Date: 20230113
  Serious: No
  Sender: FDA-Public Use
  Company Number: US-Melinta Therapeutics, LLC-US-MLNT-22-00125

PATIENT
  Age: 60 Year
  Sex: Male

DRUGS (2)
  1. KIMYRSA [Suspect]
     Active Substance: ORITAVANCIN DIPHOSPHATE
     Indication: Skin infection
     Dosage: NOT PROVIDED.
     Route: 041
     Dates: start: 20220715, end: 20220715
  2. KIMYRSA [Suspect]
     Active Substance: ORITAVANCIN DIPHOSPHATE
     Indication: Soft tissue infection
     Dosage: NOT PROVIDED.
     Route: 041
     Dates: start: 20220729, end: 20220729

REACTIONS (10)
  - Mass [Unknown]
  - Erythema [Unknown]
  - Hyperhidrosis [Unknown]
  - Feeling hot [Unknown]
  - Nausea [Unknown]
  - Pruritus [Unknown]
  - Flushing [Unknown]
  - Dizziness [Unknown]
  - Hypotension [Unknown]
  - Multiple use of single-use product [Unknown]

NARRATIVE: CASE EVENT DATE: 20220729
